FAERS Safety Report 9745440 (Version 1)
Quarter: 2013Q4

REPORT INFORMATION
  Report Type: Spontaneous
  Country: BR (occurrence: BR)
  Receive Date: 20131211
  Receipt Date: 20131211
  Transmission Date: 20140711
  Serious: Yes (Other)
  Sender: FDA-Public Use
  Company Number: BR-ASTRAZENECA-2013SE88990

PATIENT
  Age: 70 Year
  Sex: Male
  Weight: 81 kg

DRUGS (6)
  1. CRESTOR [Suspect]
     Indication: BLOOD CHOLESTEROL INCREASED
     Route: 048
     Dates: end: 2011
  2. CRESTOR [Suspect]
     Indication: BLOOD TRIGLYCERIDES INCREASED
     Route: 048
     Dates: end: 2011
  3. CRESTOR [Suspect]
     Indication: BLOOD CHOLESTEROL INCREASED
     Dosage: HALF TABLET DAILY
     Route: 048
     Dates: start: 2011
  4. CRESTOR [Suspect]
     Indication: BLOOD TRIGLYCERIDES INCREASED
     Dosage: HALF TABLET DAILY
     Route: 048
     Dates: start: 2011
  5. OMEPRAZOLE [Suspect]
     Indication: ABDOMINAL DISCOMFORT
     Dosage: DAILY
     Route: 048
     Dates: start: 2008
  6. RADIOTHERAPY [Suspect]
     Indication: PROSTATE CANCER
     Route: 065
     Dates: start: 2008

REACTIONS (4)
  - Prostate cancer [Recovered/Resolved]
  - Abdominal discomfort [Recovered/Resolved]
  - Hyperglycaemia [Not Recovered/Not Resolved]
  - Off label use [Not Recovered/Not Resolved]
